FAERS Safety Report 14840603 (Version 1)
Quarter: 2018Q2

REPORT INFORMATION
  Report Type: Spontaneous
  Country: US (occurrence: US)
  Receive Date: 20180417
  Receipt Date: 20180417
  Transmission Date: 20180711
  Serious: Yes (Other)
  Sender: FDA-Public Use
  Company Number: None

PATIENT
  Age: 64 Year
  Sex: Male
  Weight: 104 kg

DRUGS (6)
  1. INSULIN ASPART (NOVOLOG) [Concomitant]
  2. PIPERACILLIN-TAZOBACTAM (ZOSYN) 4.5G [Concomitant]
  3. INSULIN DETEMIR (LEVEMIR) 35 UNITS [Concomitant]
  4. SOLU-CORTEF [Suspect]
     Active Substance: HYDROCORTISONE SODIUM SUCCINATE
     Indication: ADRENAL INSUFFICIENCY
     Route: 042
     Dates: start: 20180412, end: 20180412
  5. LEVOTHYROXINE (SYNTHROID) 150MCG [Concomitant]
  6. SOLU-CORTEF [Suspect]
     Active Substance: HYDROCORTISONE SODIUM SUCCINATE
     Indication: ADRENAL INSUFFICIENCY
     Route: 042
     Dates: start: 20180411, end: 20180411

REACTIONS (4)
  - Adrenal insufficiency [None]
  - Product measured potency issue [None]
  - Product quality issue [None]
  - Chest discomfort [None]

NARRATIVE: CASE EVENT DATE: 20180412
